FAERS Safety Report 7018229-5 (Version None)
Quarter: 2010Q3

REPORT INFORMATION
  Report Type: 
  Country: None (occurrence: None)
  Receive Date: 20100927
  Receipt Date: 20100927
  Transmission Date: 20110219
  Serious: Yes (Life-Threatening)
  Sender: FDA-Public Use
  Company Number: None

PATIENT
  Sex: Female
  Weight: 141.0687 kg

DRUGS (1)
  1. VOLTAREN [Suspect]
     Indication: ARTHRITIS
     Dosage: 2 TO 4 GRAMS, 2 TO 4 TIMES DAILY
     Dates: start: 20100915, end: 20100924

REACTIONS (1)
  - RECTAL HAEMORRHAGE [None]
